FAERS Safety Report 12934555 (Version 1)
Quarter: 2016Q4

REPORT INFORMATION
  Report Type: Spontaneous
  Country: CH (occurrence: CH)
  Receive Date: 20161111
  Receipt Date: 20161111
  Transmission Date: 20170207
  Serious: Yes (Hospitalization, Other)
  Sender: FDA-Public Use
  Company Number: CH-ELI_LILLY_AND_COMPANY-CH201611001796

PATIENT
  Age: 77 Year
  Sex: Female
  Weight: 94.2 kg

DRUGS (11)
  1. RYZODEG 70/30 [Concomitant]
     Active Substance: INSULIN ASPART\INSULIN DEGLUDEC
     Dosage: 38 UI MIDI ET SOIR
     Route: 058
  2. METO ZEROK [Concomitant]
     Active Substance: METOPROLOL SUCCINATE
     Dosage: 50 MG, QD
     Route: 048
  3. CORDARONE [Suspect]
     Active Substance: AMIODARONE HYDROCHLORIDE
     Indication: ARRHYTHMIA
     Dosage: 200 MG, QD
     Route: 048
     Dates: end: 20161001
  4. NOVORAPID [Concomitant]
     Active Substance: INSULIN ASPART
     Dosage: 20 IU, QD
     Route: 058
  5. PANTOZOL [Concomitant]
     Active Substance: PANTOPRAZOLE SODIUM
     Dosage: 20 MG, QD
     Route: 048
  6. PANTOZOL [Concomitant]
     Active Substance: PANTOPRAZOLE SODIUM
     Dosage: 40 MG, UNK
  7. INVOKANA [Suspect]
     Active Substance: CANAGLIFLOZIN
     Indication: TYPE 2 DIABETES MELLITUS
     Dosage: 100 MG, QD
     Route: 048
  8. SINTROM [Concomitant]
     Active Substance: ACENOCOUMAROL
     Dosage: 1 MG, QD
     Route: 048
  9. TRULICITY [Suspect]
     Active Substance: DULAGLUTIDE
     Indication: TYPE 2 DIABETES MELLITUS
     Dosage: 1 DF, UNKNOWN
     Route: 058
     Dates: start: 20160928, end: 20160928
  10. TOREM                              /01036501/ [Suspect]
     Active Substance: TORSEMIDE
     Indication: HYPERTENSION
     Dosage: 15 MG, QD
     Route: 048
     Dates: end: 20161001
  11. ELTROXIN [Concomitant]
     Active Substance: LEVOTHYROXINE
     Dosage: .1 MG, QD
     Route: 048

REACTIONS (14)
  - Aspartate aminotransferase increased [Recovered/Resolved]
  - Bilirubin conjugated increased [Unknown]
  - Cholelithiasis [Recovered/Resolved]
  - Lipase increased [Recovered/Resolved]
  - Abdominal pain [Recovered/Resolved]
  - Blood alkaline phosphatase increased [Recovering/Resolving]
  - Pancreatitis acute [Recovered/Resolved]
  - Cholestasis [Unknown]
  - Blood lactate dehydrogenase increased [Unknown]
  - Amylase increased [Recovered/Resolved]
  - Blood creatinine increased [Unknown]
  - Gamma-glutamyltransferase increased [Unknown]
  - Blood bilirubin increased [Unknown]
  - Alanine aminotransferase increased [Recovering/Resolving]

NARRATIVE: CASE EVENT DATE: 20160928
